FAERS Safety Report 6771224-3 (Version None)
Quarter: 2010Q2

REPORT INFORMATION
  Report Type: 
  Country: None (occurrence: None)
  Receive Date: 20100616
  Receipt Date: 20100609
  Transmission Date: 20101027
  Serious: Yes (Death, Life-Threatening, Hospitalization)
  Sender: FDA-Public Use
  Company Number: JP-BAYER-201010711BYL

PATIENT
  Age: 81 Year
  Sex: Male
  Weight: 53 kg

DRUGS (19)
  1. NEXAVAR [Suspect]
     Indication: HEPATIC NEOPLASM MALIGNANT
     Dosage: UNIT DOSE: 200 MG
     Route: 048
     Dates: start: 20091218, end: 20100103
  2. NEXAVAR [Suspect]
     Dosage: UNIT DOSE: 200 MG
     Route: 048
     Dates: start: 20100104, end: 20100104
  3. NEXAVAR [Suspect]
     Dosage: TOTAL DAILY DOSE: 200 MG  UNIT DOSE: 200 MG
     Route: 048
     Dates: start: 20100115, end: 20100204
  4. ULCERLMIN [Concomitant]
     Dosage: UNIT DOSE: 90 %
     Route: 048
  5. CEROCRAL [Concomitant]
     Route: 048
  6. MYSLEE [Concomitant]
     Route: 048
  7. MICARDIS [Concomitant]
     Route: 048
  8. ALOSENN [Concomitant]
     Route: 048
  9. GASMOTIN [Concomitant]
     Route: 048
     Dates: end: 20091218
  10. UREPEARL [Concomitant]
     Route: 061
     Dates: start: 20091218
  11. LOXONIN [Concomitant]
     Route: 048
     Dates: start: 20091218
  12. SELBEX [Concomitant]
     Route: 048
     Dates: start: 20091218
  13. CEREKINON [Concomitant]
     Route: 048
     Dates: start: 20091219
  14. PARIET [Concomitant]
     Route: 048
     Dates: start: 20091219
  15. PURSENNID [Concomitant]
     Route: 048
     Dates: start: 20091219, end: 20091219
  16. DERMOVATE [Concomitant]
     Route: 061
     Dates: start: 20091224
  17. WHITE PETROLATUM [Concomitant]
     Route: 061
     Dates: start: 20091224
  18. PL [Concomitant]
     Route: 048
     Dates: start: 20100104
  19. CALONAL [Concomitant]
     Dosage: UNIT DOSE: 50 %
     Route: 048
     Dates: start: 20100104

REACTIONS (11)
  - BLOOD PRESSURE INCREASED [None]
  - CANCER PAIN [None]
  - COUGH [None]
  - DECREASED APPETITE [None]
  - DYSPEPSIA [None]
  - GENERAL PHYSICAL HEALTH DETERIORATION [None]
  - HEPATIC FAILURE [None]
  - MALAISE [None]
  - NAUSEA [None]
  - PLATELET COUNT DECREASED [None]
  - PYREXIA [None]
